FAERS Safety Report 9456780 (Version 1)
Quarter: 2013Q3

REPORT INFORMATION
  Report Type: Report from Study
  Country: US (occurrence: US)
  Receive Date: 20130813
  Receipt Date: 20130813
  Transmission Date: 20140515
  Serious: Yes (Hospitalization, Other)
  Sender: FDA-Public Use
  Company Number: US-ABBOTT-13P-163-1130724-00

PATIENT
  Age: 65 Year
  Sex: Female
  Weight: 40.86 kg

DRUGS (8)
  1. HUMIRA [Suspect]
     Indication: CROHN^S DISEASE
     Dates: start: 2012, end: 2012
  2. HUMIRA [Suspect]
     Route: 058
     Dates: start: 2012, end: 2012
  3. HUMIRA [Suspect]
     Route: 058
     Dates: start: 2012, end: 201305
  4. PREMARIN [Concomitant]
     Indication: MENOPAUSE
  5. METHYLPROGESTERONE [Concomitant]
     Indication: MENOPAUSE
  6. WELLBUTRIN [Concomitant]
     Indication: DEPRESSION
  7. TRAZADONE [Concomitant]
     Indication: INSOMNIA
  8. FORTEO [Concomitant]
     Indication: PRODUCT USED FOR UNKNOWN INDICATION

REACTIONS (11)
  - Diarrhoea haemorrhagic [Recovered/Resolved]
  - Crohn^s disease [Recovering/Resolving]
  - Abdominal pain [Recovering/Resolving]
  - Retching [Recovered/Resolved]
  - Dizziness [Recovered/Resolved]
  - Hypophagia [Recovered/Resolved]
  - Gastrointestinal inflammation [Recovering/Resolving]
  - Dehydration [Recovered/Resolved]
  - Heart rate irregular [Unknown]
  - Electrolyte imbalance [Recovered/Resolved]
  - Pyrexia [Recovered/Resolved]
